APPROVED DRUG PRODUCT: DISOPYRAMIDE PHOSPHATE
Active Ingredient: DISOPYRAMIDE PHOSPHATE
Strength: EQ 100MG BASE
Dosage Form/Route: CAPSULE;ORAL
Application: A070240 | Product #001
Applicant: WATSON LABORATORIES INC
Approved: Feb 2, 1986 | RLD: No | RS: No | Type: DISCN